FAERS Safety Report 6225414-9 (Version None)
Quarter: 2009Q2

REPORT INFORMATION
  Report Type: 
  Country: None (occurrence: None)
  Receive Date: 20090612
  Receipt Date: 20090416
  Transmission Date: 20091009
  Serious: No
  Sender: FDA-Public Use
  Company Number: US-ABBOTT-09P-163-0568920-00

PATIENT
  Sex: Female
  Weight: 81.72 kg

DRUGS (1)
  1. HUMIRA [Suspect]
     Indication: PSORIASIS
     Dosage: LOADING DOSE, ONE DOSE
     Route: 058
     Dates: start: 20090408, end: 20090408

REACTIONS (3)
  - FEELING HOT [None]
  - HYPERAESTHESIA [None]
  - SWELLING [None]
